FAERS Safety Report 7346613-9 (Version None)
Quarter: 2011Q1

REPORT INFORMATION
  Report Type: 
  Country: None (occurrence: None)
  Receive Date: 20110311
  Receipt Date: 20110301
  Transmission Date: 20110831
  Serious: Yes (Hospitalization, Other)
  Sender: FDA-Public Use
  Company Number: FR-JNJFOC-20110103869

PATIENT
  Age: 61 Year
  Sex: Male

DRUGS (6)
  1. VALIUM [Concomitant]
     Route: 048
  2. LAROXYL [Concomitant]
     Route: 048
  3. RISPERDAL [Suspect]
     Indication: SCHIZOPHRENIA
     Route: 048
  4. PARKINANE [Concomitant]
     Route: 048
  5. LARGACTIL [Concomitant]
     Route: 048
  6. TEGRETOL [Concomitant]
     Indication: DRUG THERAPY
     Route: 048

REACTIONS (5)
  - ANAEMIA [None]
  - LEUKOPENIA [None]
  - PHLEBITIS [None]
  - THROMBOCYTOPENIA [None]
  - RED BLOOD CELL COUNT DECREASED [None]
